FAERS Safety Report 11394066 (Version 9)
Quarter: 2018Q1

REPORT INFORMATION
  Report Type: Report from Study
  Country: FR (occurrence: FR)
  Receive Date: 20150819
  Receipt Date: 20180313
  Transmission Date: 20180508
  Serious: Yes (Life-Threatening, Hospitalization, Other)
  Sender: FDA-Public Use
  Company Number: FR-ROCHE-1618132

PATIENT
  Age: 74 Year
  Sex: Female

DRUGS (13)
  1. INEXIUM [Concomitant]
     Active Substance: ESOMEPRAZOLE
     Indication: PRODUCT USED FOR UNKNOWN INDICATION
     Dosage: 40 MG, UNK
     Route: 065
  2. APROVEL [Concomitant]
     Active Substance: IRBESARTAN
     Indication: HYPERTENSION
     Dosage: 300 MG, UNK
     Route: 065
  3. MICARDIS PLUS [Concomitant]
     Active Substance: HYDROCHLOROTHIAZIDE\TELMISARTAN
     Indication: PRODUCT USED FOR UNKNOWN INDICATION
     Dosage: UNK
     Route: 065
  4. RANIBIZUMAB. [Suspect]
     Active Substance: RANIBIZUMAB
     Indication: DIABETIC RETINAL OEDEMA
     Dosage: LEFT EYE
     Route: 031
     Dates: start: 20150226
  5. AMAREL [Concomitant]
     Active Substance: GLIMEPIRIDE
     Indication: HYPERTENSION
     Dosage: 1 MG, UNK
     Route: 065
  6. TENORMIN [Concomitant]
     Active Substance: ATENOLOL
     Indication: HYPERTENSION
     Dosage: 100 MG, UNK
     Route: 065
  7. KARDEGIC [Concomitant]
     Active Substance: ASPIRIN DL-LYSINE
     Indication: PRODUCT USED FOR UNKNOWN INDICATION
     Dosage: UNK
     Route: 065
  8. RANIBIZUMAB. [Suspect]
     Active Substance: RANIBIZUMAB
     Dosage: LEFT EYE
     Route: 031
     Dates: start: 20150326
  9. RANIBIZUMAB. [Suspect]
     Active Substance: RANIBIZUMAB
     Dosage: LEFT EYE
     Route: 031
     Dates: start: 20150427
  10. RANIBIZUMAB. [Suspect]
     Active Substance: RANIBIZUMAB
     Dosage: LAST DOSE PRIOR TO SAE ON 28/MAY/2015 LEFT EYE
     Route: 031
     Dates: start: 20150528, end: 20150528
  11. COUMADINE [Concomitant]
     Active Substance: WARFARIN SODIUM
     Indication: PRODUCT USED FOR UNKNOWN INDICATION
     Dosage: 2 MG, UNK
     Route: 065
  12. ZYLORIC [Concomitant]
     Active Substance: ALLOPURINOL
     Indication: PRODUCT USED FOR UNKNOWN INDICATION
     Dosage: 300 MG, UNK
     Route: 065
  13. VICTOZA [Concomitant]
     Active Substance: LIRAGLUTIDE
     Indication: DIABETES MELLITUS
     Dosage: 1.2 MG, UNK
     Route: 058

REACTIONS (13)
  - Altered state of consciousness [Unknown]
  - Renal artery occlusion [Recovered/Resolved]
  - Posterior reversible encephalopathy syndrome [Recovered/Resolved]
  - Dizziness [Unknown]
  - Cerebrovascular accident [Unknown]
  - Vision blurred [Unknown]
  - Back pain [Unknown]
  - Bronchitis [Unknown]
  - Petit mal epilepsy [Unknown]
  - Hypertensive crisis [Unknown]
  - Osteoarthritis [Unknown]
  - Eye pain [Unknown]
  - Brain oedema [Unknown]

NARRATIVE: CASE EVENT DATE: 201506
